FAERS Safety Report 21632182 (Version 2)
Quarter: 2022Q4

REPORT INFORMATION
  Report Type: Report from Study
  Country: US (occurrence: US)
  Receive Date: 20221123
  Receipt Date: 20221214
  Transmission Date: 20230113
  Serious: Yes (Hospitalization)
  Sender: FDA-Public Use
  Company Number: US-ABBVIE-22K-163-4351340-00

PATIENT
  Age: 60 Year
  Sex: Female

DRUGS (2)
  1. HUMIRA [Suspect]
     Active Substance: ADALIMUMAB
     Indication: Crohn^s disease
     Dosage: TIME INTERVAL: 1 TOTAL: DAY ONE
     Route: 058
     Dates: start: 20220102, end: 20220102
  2. HUMIRA [Suspect]
     Active Substance: ADALIMUMAB
     Dosage: TIME INTERVAL: 1 TOTAL: DAY 15
     Route: 058
     Dates: start: 20220116, end: 20220116

REACTIONS (16)
  - Small intestinal obstruction [Recovered/Resolved]
  - Gastrointestinal sounds abnormal [Unknown]
  - Lichen planus [Not Recovered/Not Resolved]
  - Anxiety [Unknown]
  - SARS-CoV-2 test positive [Unknown]
  - Insomnia [Recovered/Resolved]
  - Nausea [Unknown]
  - Loss of personal independence in daily activities [Unknown]
  - Flatulence [Unknown]
  - Fatigue [Unknown]
  - Arthralgia [Unknown]
  - Insomnia [Recovered/Resolved]
  - Insomnia [Recovered/Resolved]
  - Insomnia [Unknown]
  - Abdominal distension [Unknown]
  - Asthenia [Unknown]

NARRATIVE: CASE EVENT DATE: 20220301
